FAERS Safety Report 6524816-0 (Version None)
Quarter: 2009Q4

REPORT INFORMATION
  Report Type: 
  Country: None (occurrence: None)
  Receive Date: 20091224
  Receipt Date: 20091224
  Transmission Date: 20100525
  Serious: No
  Sender: FDA-Public Use
  Company Number: None

PATIENT
  Age: 59 Year
  Sex: Female
  Weight: 72.5755 kg

DRUGS (2)
  1. COLD REMEDY NASAL GEL [Suspect]
     Dosage: QD - 1 DOSE
     Dates: start: 20091019, end: 20091019
  2. CELEXA [Concomitant]

REACTIONS (3)
  - ANOSMIA [None]
  - NASAL DISCOMFORT [None]
  - RHINALGIA [None]
